FAERS Safety Report 18786041 (Version 1)
Quarter: 2021Q1

REPORT INFORMATION
  Report Type: Spontaneous
  Country: US (occurrence: US)
  Receive Date: 20210125
  Receipt Date: 20210125
  Transmission Date: 20210419
  Serious: Yes (Other)
  Sender: FDA-Public Use
  Company Number: None

PATIENT
  Age: 42 Year
  Sex: Female
  Weight: 63 kg

DRUGS (1)
  1. DEXTROAMPHET SACCHARAT, AMPHET ASPARTATE, DEXTROAMPHET SULFATE AND AMPHET SULFAT [Suspect]
     Active Substance: AMPHETAMINE ASPARTATE\AMPHETAMINE SULFATE\DEXTROAMPHETAMINE SACCHARATE\DEXTROAMPHETAMINE SULFATE
     Indication: ATTENTION DEFICIT HYPERACTIVITY DISORDER
     Dosage: ?          QUANTITY:1 TABLET(S);?
     Route: 048
     Dates: start: 20210124, end: 20210125

REACTIONS (10)
  - Dyspnoea [None]
  - Cough [None]
  - Hypoaesthesia [None]
  - Chest discomfort [None]
  - Migraine [None]
  - Pain in extremity [None]
  - Product substitution issue [None]
  - Headache [None]
  - Chest pain [None]
  - Visual impairment [None]

NARRATIVE: CASE EVENT DATE: 20210125
